FAERS Safety Report 4909495-8 (Version None)
Quarter: 2006Q1

REPORT INFORMATION
  Report Type: 
  Country: None (occurrence: None)
  Receive Date: 20060213
  Receipt Date: 20050926
  Transmission Date: 20060701
  Serious: Yes (Hospitalization)
  Sender: FDA-Public Use
  Company Number: US-MERCK-0509USA03788

PATIENT
  Age: 62 Year
  Sex: Female

DRUGS (4)
  1. VIOXX [Suspect]
     Indication: ARTHRITIS
     Route: 048
     Dates: end: 20040925
  2. VIOXX [Suspect]
     Indication: PAIN
     Route: 048
     Dates: end: 20040925
  3. AMBIEN [Concomitant]
     Route: 065
  4. XANAX [Concomitant]
     Route: 065

REACTIONS (10)
  - CARDIAC FAILURE CONGESTIVE [None]
  - DEPRESSION [None]
  - DIABETIC GASTROPARESIS [None]
  - GASTROOESOPHAGEAL REFLUX DISEASE [None]
  - HYPERKALAEMIA [None]
  - HYPONATRAEMIA [None]
  - PNEUMONIA [None]
  - RENAL FAILURE [None]
  - SEPSIS [None]
  - UROSEPSIS [None]
